FAERS Safety Report 14927640 (Version 1)
Quarter: 2018Q2

REPORT INFORMATION
  Report Type: Spontaneous
  Country: BR (occurrence: BR)
  Receive Date: 20180523
  Receipt Date: 20180523
  Transmission Date: 20180711
  Serious: Yes (Other)
  Sender: FDA-Public Use
  Company Number: BR-B.I. PHARMACEUTICALS,INC./RIDGEFIELD-2018-BI-027157

PATIENT
  Age: 50 Year

DRUGS (1)
  1. PRADAXA [Suspect]
     Active Substance: DABIGATRAN ETEXILATE MESYLATE
     Indication: ATRIAL FIBRILLATION
     Route: 065

REACTIONS (7)
  - Syncope [Unknown]
  - Subdural haematoma [Unknown]
  - Cardio-respiratory arrest [Unknown]
  - Oedema [Unknown]
  - Cerebral haematoma [Unknown]
  - Post procedural haemorrhage [Unknown]
  - Hyperhidrosis [Unknown]
